FAERS Safety Report 5399527-8 (Version None)
Quarter: 2007Q3

REPORT INFORMATION
  Report Type: 
  Country: None (occurrence: None)
  Receive Date: 20070727
  Receipt Date: 20070719
  Transmission Date: 20080115
  Serious: Yes (Other)
  Sender: FDA-Public Use
  Company Number: US-GENENTECH-234579

PATIENT
  Age: 93 Year
  Sex: Female

DRUGS (4)
  1. AVASTIN [Suspect]
     Indication: MACULAR DEGENERATION
     Dosage: 1.25 MG, UNK
     Route: 031
     Dates: start: 20051001
  2. TOPICAL ANESTHESIA (UNK INGREDIENTS) [Concomitant]
     Indication: PREMEDICATION
  3. BETADINE OPHTHALMIC SOLUTION [Concomitant]
     Indication: PREMEDICATION
  4. LIDOCAINE [Concomitant]

REACTIONS (1)
  - DETACHMENT OF RETINAL PIGMENT EPITHELIUM [None]
